FAERS Safety Report 6679968-9 (Version None)
Quarter: 2010Q2

REPORT INFORMATION
  Report Type: 
  Country: None (occurrence: None)
  Receive Date: 20100413
  Receipt Date: 20100330
  Transmission Date: 20101027
  Serious: Yes (Hospitalization)
  Sender: FDA-Public Use
  Company Number: PL-MYLANLABS-2010S1005383

PATIENT
  Age: 52 Year
  Sex: Female

DRUGS (2)
  1. SPIRONOLACTONE [Suspect]
     Route: 065
  2. AMLODIPINE [Suspect]
     Route: 065

REACTIONS (1)
  - ACUTE GENERALISED EXANTHEMATOUS PUSTULOSIS [None]
